FAERS Safety Report 8667677 (Version 4)
Quarter: 2013Q4

REPORT INFORMATION
  Report Type: Report from Study
  Country: JP (occurrence: JP)
  Receive Date: 20120717
  Receipt Date: 20131101
  Transmission Date: 20140711
  Serious: Yes (Death, Other)
  Sender: FDA-Public Use
  Company Number: JP-009507513-1204USA03501

PATIENT
  Age: 66 Year
  Sex: Female

DRUGS (3)
  1. GLACTIV [Suspect]
     Indication: TYPE 2 DIABETES MELLITUS
     Dosage: 50 MG, QD
     Route: 048
     Dates: start: 20111004, end: 20111231
  2. MICARDIS [Concomitant]
     Dates: start: 20100721, end: 20111227
  3. ADALAT L [Concomitant]
     Dates: start: 20100721, end: 20111227

REACTIONS (2)
  - Gastric cancer [Fatal]
  - Sepsis [Fatal]
